FAERS Safety Report 8598880-1 (Version None)
Quarter: 2012Q3

REPORT INFORMATION
  Report Type: 
  Country: None (occurrence: None)
  Receive Date: 20120806
  Receipt Date: 20120806
  Transmission Date: 20120928
  Serious: Yes (Disabling)
  Sender: FDA-Public Use
  Company Number: None

PATIENT
  Age: 62 Year
  Sex: Male
  Weight: 79.3795 kg

DRUGS (2)
  1. SEPTOCAINE [Suspect]
     Indication: NERVE BLOCK
     Dosage: 1 CARPULE SINGLE DENTAL
     Route: 004
     Dates: start: 20120627, end: 20120627
  2. SEPTOCAINE [Suspect]
     Indication: LOCAL ANAESTHESIA
     Dosage: 1 CARPULE SINGLE DENTAL
     Route: 004
     Dates: start: 20120627, end: 20120627

REACTIONS (5)
  - NERVE INJURY [None]
  - AGEUSIA [None]
  - DISCOMFORT [None]
  - TONGUE DISORDER [None]
  - PAIN [None]
